FAERS Safety Report 4285222-5 (Version None)
Quarter: 2004Q1

REPORT INFORMATION
  Report Type: 
  Country: None (occurrence: None)
  Receive Date: 20040202
  Receipt Date: 20040116
  Transmission Date: 20041129
  Serious: Yes (Hospitalization, Other)
  Sender: FDA-Public Use
  Company Number: 204253

PATIENT
  Age: 55 Year
  Sex: Male

DRUGS (3)
  1. MABTHERA (RITUXIMAB) [Suspect]
     Indication: LYMPHOMA
     Route: 042
  2. GEMZAR [Suspect]
     Indication: LYMPHOMA
  3. OXALIPLATIN (OXALIPLATIN) [Suspect]
     Indication: LYMPHOMA

REACTIONS (1)
  - AGRANULOCYTOSIS [None]
